FAERS Safety Report 17375299 (Version 1)
Quarter: 2020Q1

REPORT INFORMATION
  Report Type: Spontaneous
  Country: US (occurrence: US)
  Receive Date: 20200206
  Receipt Date: 20200206
  Transmission Date: 20200409
  Serious: No
  Sender: FDA-Public Use
  Company Number: US-BEH-2020112384

PATIENT
  Sex: Female

DRUGS (44)
  1. HIZENTRA [Suspect]
     Active Substance: HUMAN IMMUNOGLOBULIN G
     Dosage: UNK
     Route: 058
  2. TESSALON [Concomitant]
     Active Substance: BENZONATATE
  3. SINGULAIR [Concomitant]
     Active Substance: MONTELUKAST SODIUM
  4. IPRATROPIUM [Concomitant]
     Active Substance: IPRATROPIUM
  5. CLONAZEPAM. [Concomitant]
     Active Substance: CLONAZEPAM
  6. AVAPRO [Concomitant]
     Active Substance: IRBESARTAN
  7. PATADAY [Concomitant]
     Active Substance: OLOPATADINE HYDROCHLORIDE
  8. LYRICA [Concomitant]
     Active Substance: PREGABALIN
  9. LOTRISONE [Concomitant]
     Active Substance: BETAMETHASONE DIPROPIONATE\CLOTRIMAZOLE
  10. LEVOTHYROXIN [Concomitant]
     Active Substance: LEVOTHYROXINE
  11. AZELASTINE. [Concomitant]
     Active Substance: AZELASTINE HYDROCHLORIDE
  12. HIZENTRA [Suspect]
     Active Substance: HUMAN IMMUNOGLOBULIN G
     Dosage: UNK
     Route: 058
  13. ZANTAC [Concomitant]
     Active Substance: RANITIDINE HYDROCHLORIDE
  14. LEXAPRO [Concomitant]
     Active Substance: ESCITALOPRAM OXALATE
  15. LEVSIN [Concomitant]
     Active Substance: HYOSCYAMINE SULFATE
  16. CIPRODEX [CIPROFLOXACIN HYDROCHLORIDE] [Concomitant]
     Active Substance: CIPROFLOXACIN HYDROCHLORIDE
  17. ASPIRIN [ACETYLSALICYLIC ACID] [Concomitant]
     Active Substance: ASPIRIN
  18. ALLEGRA [Concomitant]
     Active Substance: FEXOFENADINE HYDROCHLORIDE
  19. TOPROL XL [Concomitant]
     Active Substance: METOPROLOL SUCCINATE
  20. PENLAC [Concomitant]
     Active Substance: CICLOPIROX
  21. MAG OXIDE [Concomitant]
     Active Substance: MAGNESIUM OXIDE
  22. ALBUTEROL [SALBUTAMOL] [Concomitant]
     Active Substance: ALBUTEROL
  23. TRICOR [ADENOSINE] [Concomitant]
     Active Substance: ADENOSINE
  24. QVAR [Concomitant]
     Active Substance: BECLOMETHASONE DIPROPIONATE
  25. QNASL [Concomitant]
     Active Substance: BECLOMETHASONE DIPROPIONATE
  26. PRAVACHOL [Concomitant]
     Active Substance: PRAVASTATIN SODIUM
  27. APTIOM [Concomitant]
     Active Substance: ESLICARBAZEPINE ACETATE
  28. HIZENTRA [Suspect]
     Active Substance: HUMAN IMMUNOGLOBULIN G
     Indication: ASTHMA
     Dosage: 50 MILLILITER, QW
     Route: 058
     Dates: start: 20150902
  29. VIBERZI [Concomitant]
     Active Substance: ELUXADOLINE
  30. EPIPEN [Concomitant]
     Active Substance: EPINEPHRINE
  31. XOLAIR [Concomitant]
     Active Substance: OMALIZUMAB
  32. TOUJEO [Concomitant]
     Active Substance: INSULIN GLARGINE
  33. RANITIDINE. [Concomitant]
     Active Substance: RANITIDINE
  34. PROAIR HFA [Concomitant]
     Active Substance: ALBUTEROL SULFATE
  35. HUMALOG [Concomitant]
     Active Substance: INSULIN LISPRO
  36. TROKENDI [Concomitant]
     Active Substance: TOPIRAMATE
  37. SYMBICORT [Concomitant]
     Active Substance: BUDESONIDE\FORMOTEROL FUMARATE DIHYDRATE
  38. SPIRIVA [Concomitant]
     Active Substance: TIOTROPIUM BROMIDE MONOHYDRATE
  39. PROMETHAZINE [Concomitant]
     Active Substance: PROMETHAZINE HYDROCHLORIDE
  40. HYDRALAZINE [Concomitant]
     Active Substance: HYDRALAZINE HYDROCHLORIDE
  41. GLUCAGON. [Concomitant]
     Active Substance: GLUCAGON
  42. FIORICET [Concomitant]
     Active Substance: ACETAMINOPHEN\BUTALBITAL\CAFFEINE
  43. DEXILANT [Concomitant]
     Active Substance: DEXLANSOPRAZOLE
  44. DEPAKOTE [Concomitant]
     Active Substance: DIVALPROEX SODIUM

REACTIONS (4)
  - Limb discomfort [Not Recovered/Not Resolved]
  - Product use in unapproved indication [Unknown]
  - Pain in extremity [Not Recovered/Not Resolved]
  - No adverse event [Unknown]
